FAERS Safety Report 18821930 (Version 1)
Quarter: 2021Q1

REPORT INFORMATION
  Report Type: Spontaneous
  Country: CN (occurrence: CN)
  Receive Date: 20210202
  Receipt Date: 20210202
  Transmission Date: 20210419
  Serious: Yes (Other)
  Sender: FDA-Public Use
  Company Number: CN-009507513-2101CHN012606

PATIENT
  Age: 65 Year
  Sex: Male

DRUGS (2)
  1. CISPLATIN (+) PEMETREXED DISODIUM [Suspect]
     Active Substance: CISPLATIN\PEMETREXED
     Indication: LUNG ADENOCARCINOMA STAGE III
     Dosage: 3 CYCLES, CISPLATIN (130 MG)/PEMETREXED(900MG)
     Route: 042
  2. PEMBROLIZUMAB. [Suspect]
     Active Substance: PEMBROLIZUMAB
     Indication: LUNG ADENOCARCINOMA STAGE III
     Dosage: 200 MG, 3 CYCLES
     Route: 042

REACTIONS (1)
  - Bronchopleural fistula [Recovered/Resolved]
